FAERS Safety Report 25255062 (Version 1)
Quarter: 2025Q2

REPORT INFORMATION
  Report Type: Spontaneous
  Country: US (occurrence: None)
  Receive Date: 20250430
  Receipt Date: 20250430
  Transmission Date: 20250716
  Serious: Yes (Other)
  Sender: FDA-CTU
  Company Number: None

PATIENT
  Sex: Female

DRUGS (11)
  1. MYCOPHENOLIC ACID [Suspect]
     Active Substance: MYCOPHENOLIC ACID
     Indication: Systemic lupus erythematosus
     Dosage: FREQUENCY : TWICE A DAY;?
     Route: 048
     Dates: start: 20250211
  2. ADCIRCA [Concomitant]
     Active Substance: TADALAFIL
  3. ALPRAZOLAM POW [Concomitant]
  4. AMLODIPINE POW [Concomitant]
  5. BENLYSTA [Concomitant]
     Active Substance: BELIMUMAB
  6. DOXEPI N HCL POW [Concomitant]
  7. HYDROCODONE POW BITARTRA [Concomitant]
  8. LOSARTAN POW POTASSIU [Concomitant]
  9. METHYLPRED POW [Concomitant]
  10. MYCOPHENOLAT POW [Concomitant]
  11. PHENERGAN [Concomitant]
     Active Substance: PROMETHAZINE HYDROCHLORIDE

REACTIONS (1)
  - Therapy interrupted [None]
